FAERS Safety Report 5664683-0 (Version None)
Quarter: 2008Q1

REPORT INFORMATION
  Report Type: 
  Country: None (occurrence: None)
  Receive Date: 20080314
  Receipt Date: 20080304
  Transmission Date: 20080703
  Serious: Yes (Death)
  Sender: FDA-Public Use
  Company Number: NL-ROCHE-551527

PATIENT
  Age: 71 Year
  Sex: Female

DRUGS (2)
  1. CELLCEPT [Suspect]
     Route: 048
     Dates: start: 19980101, end: 20060501
  2. PROGRAFT [Concomitant]
     Dates: start: 19980101, end: 20060501

REACTIONS (1)
  - LEUKOENCEPHALOPATHY [None]
